FAERS Safety Report 4657370-9 (Version None)
Quarter: 2005Q2

REPORT INFORMATION
  Report Type: 
  Country: None (occurrence: None)
  Receive Date: 20050331
  Receipt Date: 20050129
  Transmission Date: 20051028
  Serious: No
  Sender: FDA-Public Use
  Company Number: US111165

PATIENT
  Age: 81 Year
  Sex: Male
  Weight: 70.4 kg

DRUGS (3)
  1. NEULASTA [Suspect]
     Indication: CHEMOTHERAPY
     Dosage: 6 MG, SC
     Route: 058
     Dates: start: 20041220, end: 20041220
  2. ACETYL SALICYLIC ACID USP BAT [Concomitant]
  3. FOLIC ACID [Concomitant]

REACTIONS (6)
  - DRY SKIN [None]
  - DYSPNOEA [None]
  - ERYTHEMA [None]
  - PRURITUS [None]
  - SWELLING [None]
  - URTICARIA [None]
